FAERS Safety Report 5682547-3 (Version None)
Quarter: 2008Q1

REPORT INFORMATION
  Report Type: 
  Country: None (occurrence: None)
  Receive Date: 20080327
  Receipt Date: 20071204
  Transmission Date: 20080703
  Serious: No
  Sender: FDA-Public Use
  Company Number: US-BRISTOL-MYERS SQUIBB COMPANY-14004329

PATIENT

DRUGS (1)
  1. ORENCIA [Suspect]

REACTIONS (1)
  - INFECTION [None]
